FAERS Safety Report 13251984 (Version 2)
Quarter: 2017Q1

REPORT INFORMATION
  Report Type: Report from Study
  Country: ZA (occurrence: ZA)
  Receive Date: 20170220
  Receipt Date: 20170224
  Transmission Date: 20170428
  Serious: Yes (Death, Hospitalization, Other)
  Sender: FDA-Public Use
  Company Number: ZA-AMGEN-ZAFSL2017026436

PATIENT
  Age: 68 Year
  Sex: Male

DRUGS (1)
  1. ARANESP [Suspect]
     Active Substance: DARBEPOETIN ALFA
     Indication: CHRONIC KIDNEY DISEASE
     Dosage: 40 MUG, Q2WK (EVERY ALTERNATE WEEKS)
     Route: 058
     Dates: start: 20160704, end: 20161105

REACTIONS (2)
  - Sepsis [Fatal]
  - Gangrene [Unknown]

NARRATIVE: CASE EVENT DATE: 20161105
